FAERS Safety Report 23916287 (Version 1)
Quarter: 2024Q2

REPORT INFORMATION
  Report Type: Spontaneous
  Country: US (occurrence: None)
  Receive Date: 20240528
  Receipt Date: 20240528
  Transmission Date: 20240716
  Serious: Yes (Life-Threatening, Hospitalization, Other)
  Sender: FDA-Public Use
  Company Number: None

PATIENT
  Age: 62 Year
  Sex: Female
  Weight: 74.25 kg

DRUGS (1)
  1. LISINOPRIL [Suspect]
     Active Substance: LISINOPRIL
     Indication: Blood pressure measurement
     Route: 048

REACTIONS (5)
  - Oropharyngeal pain [None]
  - Lip swelling [None]
  - Mouth swelling [None]
  - Pharyngeal swelling [None]
  - Throat tightness [None]

NARRATIVE: CASE EVENT DATE: 20240526
